FAERS Safety Report 23063727 (Version 2)
Quarter: 2023Q4

REPORT INFORMATION
  Report Type: Spontaneous
  Country: US (occurrence: US)
  Receive Date: 20231013
  Receipt Date: 20231226
  Transmission Date: 20240110
  Serious: Yes (Hospitalization, Other)
  Sender: FDA-Public Use
  Company Number: US-SA-SAC20231011001503

PATIENT
  Age: 66 Year
  Sex: Male

DRUGS (1)
  1. DUPIXENT [Suspect]
     Active Substance: DUPILUMAB
     Indication: Dermatitis atopic
     Dosage: UNK, 1X
     Route: 058
     Dates: start: 20230923, end: 20230923

REACTIONS (4)
  - Pneumonia [Recovered/Resolved]
  - Ear infection [Not Recovered/Not Resolved]
  - Rash macular [Unknown]
  - COVID-19 [Unknown]

NARRATIVE: CASE EVENT DATE: 20230101
